FAERS Safety Report 24224010 (Version 1)
Quarter: 2024Q3

REPORT INFORMATION
  Report Type: Spontaneous
  Country: US (occurrence: None)
  Receive Date: 20240817
  Receipt Date: 20240817
  Transmission Date: 20241017
  Serious: Yes (Hospitalization)
  Sender: Public
  Company Number: None

PATIENT
  Age: 40 Year
  Sex: Female
  Weight: 61.2 kg

DRUGS (6)
  1. HERBALS\MUSHROOMS UNSPECIFIED [Suspect]
     Active Substance: HERBALS\MUSHROOMS UNSPECIFIED
     Indication: Substance use
     Dosage: OTHER STRENGTH : UNKNOWN ORAL?
     Route: 048
     Dates: start: 20240607, end: 20240607
  2. GABAPENTIN [Concomitant]
     Active Substance: GABAPENTIN
  3. MELOXICAM [Concomitant]
     Active Substance: MELOXICAM
  4. LAMOTRIGINE [Concomitant]
     Active Substance: LAMOTRIGINE
  5. PROPRANOLOL [Concomitant]
     Active Substance: PROPRANOLOL HYDROCHLORIDE
  6. CLARITIN [Concomitant]
     Active Substance: LORATADINE

REACTIONS (3)
  - Seizure [None]
  - Dysarthria [None]
  - Mobility decreased [None]

NARRATIVE: CASE EVENT DATE: 20240607
